FAERS Safety Report 25232000 (Version 4)
Quarter: 2025Q3

REPORT INFORMATION
  Report Type: Spontaneous
  Country: US (occurrence: US)
  Receive Date: 20250423
  Receipt Date: 20250708
  Transmission Date: 20251020
  Serious: Yes (Other)
  Sender: PFIZER
  Company Number: US-PFIZER INC-202500083470

PATIENT
  Age: 51 Year
  Sex: Female

DRUGS (9)
  1. IBRANCE [Suspect]
     Active Substance: PALBOCICLIB
     Route: 048
     Dates: start: 20250402, end: 2025
  2. ANASTROZOLE [Concomitant]
     Active Substance: ANASTROZOLE
  3. DULOXETINE [Concomitant]
     Active Substance: DULOXETINE
  4. DULOXETINE [Concomitant]
     Active Substance: DULOXETINE
  5. GLIPIZIDE [Concomitant]
     Active Substance: GLIPIZIDE
  6. HYDROCODONE BITARTRATE AND ACETAMINOPHEN [Concomitant]
     Active Substance: ACETAMINOPHEN\HYDROCODONE BITARTRATE
  7. LISINOPRIL [Concomitant]
     Active Substance: LISINOPRIL
  8. MORPHINE [Concomitant]
     Active Substance: MORPHINE
  9. MORPHINE SULFATE [Concomitant]
     Active Substance: MORPHINE SULFATE

REACTIONS (5)
  - Malignant neoplasm progression [Unknown]
  - Arthralgia [Unknown]
  - Coagulation time prolonged [Unknown]
  - Haemorrhage [Unknown]
  - Product dose omission issue [Unknown]

NARRATIVE: CASE EVENT DATE: 20250101
